FAERS Safety Report 4554224-3 (Version None)
Quarter: 2004Q4

REPORT INFORMATION
  Report Type: 
  Country: None (occurrence: None)
  Receive Date: 20041227
  Receipt Date: 20041122
  Transmission Date: 20050328
  Serious: Yes (Hospitalization)
  Sender: FDA-Public Use
  Company Number: 04P-163-0281257-00

PATIENT
  Age: 77 Year
  Sex: Female

DRUGS (11)
  1. HUMIRA [Suspect]
     Indication: RHEUMATOID ARTHRITIS
     Dosage: 40 MG, 1 IN 2 WK, SUBCUTANEOUS
     Route: 058
     Dates: start: 20041001, end: 20041109
  2. VICODIN [Concomitant]
  3. CORTISONE [Concomitant]
  4. VERAPAMIL [Concomitant]
  5. GLIPIZIDE [Concomitant]
  6. PREDNISONE [Concomitant]
  7. LOVASTATIN [Concomitant]
  8. PLAVICS [Concomitant]
  9. AMOXICILLIN AND CLAVULANATE POTASSIUM [Concomitant]
  10. ESOMEPRAZOLE [Concomitant]
  11. IRON [Concomitant]

REACTIONS (3)
  - NAUSEA [None]
  - PNEUMONIA [None]
  - VOMITING [None]
